FAERS Safety Report 9423355 (Version 2)
Quarter: 2013Q3

REPORT INFORMATION
  Report Type: Spontaneous
  Country: US (occurrence: US)
  Receive Date: 20130726
  Receipt Date: 20130815
  Transmission Date: 20140515
  Serious: No
  Sender: FDA-Public Use
  Company Number: US-009507513-1307USA014374

PATIENT
  Age: 57 Year
  Sex: Female

DRUGS (1)
  1. NASONEX [Suspect]
     Dosage: 2 DF, BID
     Route: 045
     Dates: start: 201007

REACTIONS (3)
  - Drug dose omission [Unknown]
  - Product quality issue [Unknown]
  - No adverse event [Unknown]
